FAERS Safety Report 8823168 (Version 1)
Quarter: 2012Q4

REPORT INFORMATION
  Report Type: 
  Country: SE (occurrence: SE)
  Receive Date: 20121003
  Receipt Date: 20121003
  Transmission Date: 20130627
  Serious: Yes (Hospitalization)
  Sender: FDA-Public Use
  Company Number: SE-PFIZER INC-2012241293

PATIENT
  Age: 48 Year
  Sex: Male
  Weight: 66 kg

DRUGS (6)
  1. GENOTROPIN [Suspect]
     Indication: GROWTH HORMONE DEFICIENCY
     Dosage: 0.2 mg, 7/wk
     Route: 058
     Dates: start: 20050829
  2. TESTOGEL [Concomitant]
     Indication: BLOOD LUTEINISING HORMONE DECREASED
     Dosage: UNK
     Dates: start: 20010627
  3. TESTOGEL [Concomitant]
     Indication: BLOOD FOLLICLE STIMULATING HORMONE DECREASED
  4. TESTOGEL [Concomitant]
     Indication: HYPOGONADISM MALE
  5. IDEOS [Concomitant]
     Indication: VITAMIN D ABNORMAL
     Dosage: UNK
     Dates: start: 20041109
  6. HYDROCORTISONE [Concomitant]
     Indication: BLOOD CORTICOTROPHIN DECREASED
     Dosage: UNK
     Dates: start: 20050212

REACTIONS (1)
  - Adrenocortical insufficiency acute [Unknown]
